FAERS Safety Report 7911125-8 (Version None)
Quarter: 2011Q4

REPORT INFORMATION
  Report Type: 
  Country: None (occurrence: None)
  Receive Date: 20111114
  Receipt Date: 20111108
  Transmission Date: 20120403
  Serious: Yes (Hospitalization, Disabling)
  Sender: FDA-Public Use
  Company Number: CA-CELGENEUS-028-21880-11111275

PATIENT
  Sex: Male
  Weight: 89.3 kg

DRUGS (8)
  1. DONEPEZIL HCL [Suspect]
     Dosage: 10 MILLIGRAM
     Route: 048
  2. COLCHICINE [Concomitant]
     Indication: GOUT
     Dosage: 1.7 MILLIGRAM
     Route: 048
  3. REVLIMID [Suspect]
     Indication: MULTIPLE MYELOMA
     Dosage: 25 MILLIGRAM
     Route: 048
  4. REVLIMID [Suspect]
     Dosage: 15 MILLIGRAM
     Route: 048
     Dates: start: 20110101
  5. DEXAMETHASONE [Suspect]
     Indication: MULTIPLE MYELOMA
     Dosage: 12 MILLIGRAM
     Route: 048
  6. ALLOPURINOL [Concomitant]
     Indication: GOUT
     Dosage: 100 MILLIGRAM
     Route: 048
  7. FUROSEMIDE [Concomitant]
     Dosage: 10 MILLIGRAM
     Route: 048
  8. ROSUVASTATIN [Concomitant]
     Dosage: 5 MILLIGRAM
     Route: 048

REACTIONS (2)
  - PERIPHERAL ARTERIAL OCCLUSIVE DISEASE [None]
  - VERTIGO [None]
